FAERS Safety Report 8891392 (Version 1)
Quarter: 2012Q4

REPORT INFORMATION
  Report Type: Spontaneous
  Country: US (occurrence: None)
  Receive Date: 20121105
  Receipt Date: 20121105
  Transmission Date: 20130627
  Serious: Yes (Hospitalization)
  Sender: FDA-Public Use
  Company Number: None

PATIENT
  Age: 51 Year
  Sex: Male
  Weight: 136.6 kg

DRUGS (1)
  1. IBUPROFEN [Suspect]
     Indication: BACK PAIN
     Route: 048
     Dates: start: 20120517, end: 20121002

REACTIONS (5)
  - Rhabdomyolysis [None]
  - Renal tubular necrosis [None]
  - Mental status changes [None]
  - Incorrect dose administered [None]
  - Fluid overload [None]
